FAERS Safety Report 20863324 (Version 1)
Quarter: 2022Q2

REPORT INFORMATION
  Report Type: Spontaneous
  Country: IE (occurrence: None)
  Receive Date: 20220522
  Receipt Date: 20220522
  Transmission Date: 20220721
  Serious: Yes (unspecified)
  Sender: FDA-Public Use
  Company Number: None

PATIENT
  Age: 23 Year
  Sex: Female
  Weight: 66 kg

DRUGS (3)
  1. COSMETICS [Suspect]
     Active Substance: COSMETICS
     Indication: Dry skin
     Dosage: FREQUENCY : AS NEEDED;?
     Route: 061
  2. SERTRALINE [Concomitant]
     Active Substance: SERTRALINE HYDROCHLORIDE
  3. OVREENA [Concomitant]

REACTIONS (3)
  - Thermal burn [None]
  - Blister [None]
  - Swelling face [None]

NARRATIVE: CASE EVENT DATE: 20220521
